FAERS Safety Report 5656874-X (Version None)
Quarter: 2008Q1

REPORT INFORMATION
  Report Type: 
  Country: None (occurrence: None)
  Receive Date: 20080306
  Receipt Date: 20080306
  Transmission Date: 20080703
  Serious: Yes (Hospitalization)
  Sender: FDA-Public Use
  Company Number: None

PATIENT
  Sex: Male
  Weight: 88 kg

DRUGS (2)
  1. MYCOPHENOLATE MOFETIL [Suspect]
     Indication: PROPHYLAXIS AGAINST TRANSPLANT REJECTION
     Dosage: 750MG TWICE DAILY PO
     Route: 048
  2. PROGRAF [Suspect]
     Dosage: 3 MG / AM 2 MG / PM ONCE DAILY ONCE DAILY PO
     Route: 048

REACTIONS (1)
  - HYPERPARATHYROIDISM TERTIARY [None]
